FAERS Safety Report 5344134-6 (Version None)
Quarter: 2007Q2

REPORT INFORMATION
  Report Type: 
  Country: None (occurrence: None)
  Receive Date: 20070604
  Receipt Date: 20070523
  Transmission Date: 20071010
  Serious: Yes (Other)
  Sender: FDA-Public Use
  Company Number: HQWYE320023MAY07

PATIENT
  Age: 25 Year
  Sex: Female

DRUGS (2)
  1. PANTOZOL [Suspect]
     Route: 048
     Dates: start: 20060505, end: 20060519
  2. MELODEN [Suspect]
     Indication: CONTRACEPTION
     Route: 048

REACTIONS (1)
  - MENSTRUAL DISORDER [None]
